FAERS Safety Report 7307844-7 (Version None)
Quarter: 2011Q1

REPORT INFORMATION
  Report Type: 
  Country: None (occurrence: None)
  Receive Date: 20110223
  Receipt Date: 20110214
  Transmission Date: 20110831
  Serious: Yes (Hospitalization)
  Sender: FDA-Public Use
  Company Number: US-NOVOPROD-323521

PATIENT
  Age: 38 Year
  Sex: Male

DRUGS (2)
  1. LANTUS [Suspect]
     Indication: DIABETES MELLITUS
  2. NOVOLOG [Suspect]
     Indication: DIABETES MELLITUS
     Route: 058

REACTIONS (3)
  - STAPHYLOCOCCAL INFECTION [None]
  - DIABETIC ULCER [None]
  - DIABETES MELLITUS INADEQUATE CONTROL [None]
